FAERS Safety Report 9843187 (Version 1)
Quarter: 2013Q4

REPORT INFORMATION
  Report Type: Spontaneous
  Country: US (occurrence: None)
  Receive Date: 20131219
  Receipt Date: 20131219
  Transmission Date: 20140711
  Serious: Yes (Death, Hospitalization)
  Sender: FDA-Public Use
  Company Number: 163-20785-13024166

PATIENT
  Age: 68 Year
  Sex: Female

DRUGS (9)
  1. THALOMID (THALIDOMIDE) (50 MILLIGRAM, CAPSULES) [Suspect]
     Indication: MYELOFIBROSIS
     Dosage: 28 IN 28 D,
     Route: 048
     Dates: start: 20130212, end: 2013
  2. ALBUTEROL SULFATE(SALBUTAMOL SULFATE)(UNKNOWN) [Concomitant]
  3. AMBIEN(ZOLPIDEM TARTRATE)(UNKNOWN) [Concomitant]
  4. HYDROCHLOROTHIAZIDE(HYDROCHLOROTHIAZIDE)(UNKNOWN) [Concomitant]
  5. LEXAPRO(ESCITALOPRAM OXALATE) (UNKNOWN) [Concomitant]
  6. LIPITOR(ATORVASTATIN) (UNKNOWN) [Concomitant]
  7. QUINAPRIL HCL(QUINAPRIL HYDROCHLORIDE)(UNKNOWN) [Concomitant]
  8. QVAR(BECLOMETASONE DIPROPIONATE)(UNKNOWN) [Concomitant]
  9. ATENOLOL(ATENOLOL)(UNKNOWN) [Concomitant]

REACTIONS (6)
  - Myelofibrosis [None]
  - Disease progression [None]
  - Haematochezia [None]
  - Intestinal perforation [None]
  - Platelet count decreased [None]
  - Haemoglobin decreased [None]
